FAERS Safety Report 21335902 (Version 3)
Quarter: 2023Q1

REPORT INFORMATION
  Report Type: Report from Study
  Country: AR (occurrence: AR)
  Receive Date: 20220915
  Receipt Date: 20230302
  Transmission Date: 20230417
  Serious: Yes (Hospitalization, Other)
  Sender: FDA-Public Use
  Company Number: AR-NOVARTISPH-NVSC2021AR268362

PATIENT
  Age: 77 Year
  Sex: Female

DRUGS (3)
  1. COSENTYX [Suspect]
     Active Substance: SECUKINUMAB
     Indication: Psoriatic arthropathy
     Dosage: 150 MG, QW
     Route: 058
     Dates: start: 20211015
  2. COSENTYX [Suspect]
     Active Substance: SECUKINUMAB
     Dosage: 150 MG, QMO
     Route: 058
  3. COSENTYX [Suspect]
     Active Substance: SECUKINUMAB
     Dosage: 150 MG, QMO (ON LEFT AND RIGHT LEG)
     Route: 065

REACTIONS (14)
  - Accident [Unknown]
  - Spinal fracture [Unknown]
  - Lumbar vertebral fracture [Recovering/Resolving]
  - Somnolence [Unknown]
  - Headache [Recovered/Resolved]
  - Influenza [Recovering/Resolving]
  - Cough [Recovering/Resolving]
  - Stress [Unknown]
  - Insomnia [Unknown]
  - Fatigue [Unknown]
  - Fall [Unknown]
  - Osteoporosis [Unknown]
  - Pain [Unknown]
  - Hypokinesia [Unknown]

NARRATIVE: CASE EVENT DATE: 20211108
